FAERS Safety Report 16925577 (Version 2)
Quarter: 2019Q4

REPORT INFORMATION
  Report Type: Report from Study
  Country: KR (occurrence: KR)
  Receive Date: 20191016
  Receipt Date: 20191024
  Transmission Date: 20200122
  Serious: Yes (Hospitalization)
  Sender: FDA-Public Use
  Company Number: KR-PFIZER INC-2019445051

PATIENT
  Age: 72 Year
  Sex: Male
  Weight: 74.4 kg

DRUGS (16)
  1. SOLONDO [Suspect]
     Active Substance: PREDNISOLONE
     Indication: RHEUMATOID ARTHRITIS
     Dosage: 7.5 MG, 1X/DAY
     Route: 048
     Dates: start: 20190404, end: 20190626
  2. NEXIUM I.V. [Concomitant]
     Active Substance: ESOMEPRAZOLE SODIUM
     Indication: PROPHYLAXIS
     Dosage: UNK
     Route: 048
     Dates: start: 20190404
  3. SEKARON [Concomitant]
     Indication: MUSCLE SPASMS
     Dosage: UNK
     Dates: start: 20190424
  4. CITOPCIN [CIPROFLOXACIN LACTATE] [Concomitant]
     Indication: PROPHYLAXIS
     Dosage: UNK
     Route: 048
     Dates: start: 20190923, end: 20190926
  5. ERDOS [Concomitant]
     Active Substance: ERDOSTEINE
     Indication: INTERSTITIAL LUNG DISEASE
     Dosage: UNK
     Route: 048
     Dates: start: 20180309
  6. PROLIA [Concomitant]
     Active Substance: DENOSUMAB
     Indication: OSTEOPOROSIS
     Dosage: PREFILLED
     Route: 058
     Dates: start: 20190125
  7. CELEBREX [Concomitant]
     Active Substance: CELECOXIB
     Indication: RHEUMATOID ARTHRITIS
     Dosage: UNK
     Route: 048
     Dates: start: 20190627
  8. SOLONDO [Suspect]
     Active Substance: PREDNISOLONE
     Dosage: 2.5 MG, 1X/DAY
     Dates: start: 20190627
  9. CALTEO [Concomitant]
     Indication: PROPHYLAXIS
     Dosage: UNK
     Route: 048
     Dates: start: 20190405
  10. INSTILLAGEL [Concomitant]
     Active Substance: CHLORHEXIDINE GLUCONATE\LIDOCAINE HYDROCHLORIDE
     Indication: BIOPSY PROSTATE
     Dosage: SKIN APPLICATION
     Route: 061
     Dates: start: 20190926, end: 20190926
  11. NEURONTIN [Concomitant]
     Active Substance: GABAPENTIN
     Indication: MUSCLE SPASMS
     Dosage: UNK
     Route: 048
     Dates: start: 20190424
  12. XELJANZ [Suspect]
     Active Substance: TOFACITINIB CITRATE
     Indication: RHEUMATOID ARTHRITIS
     Dosage: 5 MG, 2X/DAY
     Route: 048
     Dates: start: 20190503
  13. FOSFOMYCIN [Concomitant]
     Active Substance: FOSFOMYCIN
     Indication: PROPHYLAXIS
     Dosage: UNK
     Route: 048
     Dates: start: 20190926, end: 20190926
  14. ALFUZOSIN [Concomitant]
     Active Substance: ALFUZOSIN
     Indication: BENIGN PROSTATIC HYPERPLASIA
     Dosage: UNK
     Route: 048
     Dates: start: 20141206
  15. ITOBELL [Concomitant]
     Indication: PROPHYLAXIS
     Dosage: UNK
     Route: 048
     Dates: start: 20190321
  16. LUKIO [Concomitant]
     Indication: INTERSTITIAL LUNG DISEASE
     Dosage: UNK
     Route: 048
     Dates: start: 20180509

REACTIONS (1)
  - Prostate cancer [Not Recovered/Not Resolved]

NARRATIVE: CASE EVENT DATE: 20190926
